FAERS Safety Report 10342544 (Version 1)
Quarter: 2014Q3

REPORT INFORMATION
  Report Type: Report from Study
  Country: BR (occurrence: BR)
  Receive Date: 20140725
  Receipt Date: 20140725
  Transmission Date: 20150326
  Serious: Yes (Hospitalization, Other)
  Sender: FDA-Public Use
  Company Number: BR-ABBVIE-14K-020-1261461-00

PATIENT
  Age: 44 Year
  Sex: Female
  Weight: 63 kg

DRUGS (8)
  1. CAPTOPRIL. [Concomitant]
     Active Substance: CAPTOPRIL
     Indication: BLOOD PRESSURE ABNORMAL
     Route: 048
     Dates: start: 2009
  2. DIPYRONE [Concomitant]
     Active Substance: DIPYRONE
     Indication: PAIN
     Route: 048
     Dates: start: 2011
  3. HUMIRA [Suspect]
     Active Substance: ADALIMUMAB
     Indication: PSORIATIC ARTHROPATHY
     Route: 058
     Dates: start: 2011
  4. DIAZEPAM. [Suspect]
     Active Substance: DIAZEPAM
     Indication: NERVOUSNESS
  5. AMITRIPTYLINE [Concomitant]
     Active Substance: AMITRIPTYLINE
     Indication: DEPRESSION
     Route: 048
     Dates: start: 1995
  6. OMEPRAZOLE. [Concomitant]
     Active Substance: OMEPRAZOLE
     Indication: GASTRIC DISORDER
     Route: 048
     Dates: start: 2004
  7. DIAZEPAM. [Suspect]
     Active Substance: DIAZEPAM
     Indication: DEPRESSION
     Route: 048
     Dates: start: 1995
  8. NIMESULIDE [Concomitant]
     Active Substance: NIMESULIDE
     Indication: PAIN
     Route: 048

REACTIONS (18)
  - Inguinal hernia [Recovering/Resolving]
  - Haematoma [Recovering/Resolving]
  - Haemoptysis [Recovering/Resolving]
  - Immunodeficiency [Unknown]
  - Mental disorder [Unknown]
  - Sensory disturbance [Unknown]
  - Sputum discoloured [Recovering/Resolving]
  - Depression [Unknown]
  - Respiratory arrest [Recovered/Resolved]
  - Self injurious behaviour [Unknown]
  - Genital prolapse [Not Recovered/Not Resolved]
  - Influenza [Unknown]
  - Bladder pain [Not Recovered/Not Resolved]
  - Influenza [Recovering/Resolving]
  - Abnormal behaviour [Unknown]
  - Pain [Not Recovered/Not Resolved]
  - Epistaxis [Recovering/Resolving]
  - Hypertension [Unknown]

NARRATIVE: CASE EVENT DATE: 20110101
